FAERS Safety Report 9704829 (Version 1)
Quarter: 2013Q4

REPORT INFORMATION
  Report Type: Spontaneous
  Country: US (occurrence: US)
  Receive Date: 20131122
  Receipt Date: 20131122
  Transmission Date: 20140711
  Serious: No
  Sender: FDA-Public Use
  Company Number: US-BAYER-2013-142833

PATIENT
  Age: 61 Year
  Sex: Male
  Weight: 79.37 kg

DRUGS (4)
  1. ALEVE CAPLET [Suspect]
     Indication: ANALGESIC THERAPY
     Dosage: 2 DF, PRN
     Route: 048
  2. ALEVE CAPLET [Suspect]
     Indication: PAIN
  3. VICTOZA [Concomitant]
  4. METFORMIN [Concomitant]

REACTIONS (2)
  - Drug ineffective [None]
  - Pain [None]
